FAERS Safety Report 21349636 (Version 1)
Quarter: 2022Q3

REPORT INFORMATION
  Report Type: Report from Study
  Country: CN (occurrence: CN)
  Receive Date: 20220919
  Receipt Date: 20220919
  Transmission Date: 20221027
  Serious: Yes (Hospitalization)
  Sender: FDA-Public Use
  Company Number: CN-NOVARTISPH-NVSC2021CN208436

PATIENT
  Age: 63 Year
  Sex: Female
  Weight: 60 kg

DRUGS (6)
  1. ZYKADIA [Suspect]
     Active Substance: CERITINIB
     Indication: Non-small cell lung cancer
     Dosage: 450 MG, QD
     Route: 048
     Dates: start: 20201216
  2. ZYKADIA [Suspect]
     Active Substance: CERITINIB
     Indication: Anaplastic lymphoma kinase gene mutation
     Dosage: 300 MG, QD (300MG/DAY AND 450MG/DAY WERE TAKEN ALTERNATIVELY)
     Route: 048
     Dates: start: 20210115, end: 20210122
  3. ZYKADIA [Suspect]
     Active Substance: CERITINIB
     Indication: Lung neoplasm malignant
     Dosage: 450 MG, QD
     Route: 048
     Dates: start: 20210123
  4. COMPOUND GLYCYRRHIZIN [Concomitant]
     Indication: Prophylaxis
     Dosage: 1 DOSAGE FORM, BID (1 TABLET/ TIME)
     Route: 048
     Dates: start: 20210115, end: 20210122
  5. METFORMIN [Concomitant]
     Active Substance: METFORMIN HYDROCHLORIDE
     Indication: Diabetes mellitus
     Dosage: 0.5 MG, QD
     Route: 048
     Dates: start: 2015
  6. IBANDRONIC ACID [Concomitant]
     Active Substance: IBANDRONIC ACID
     Indication: Blood calcium increased
     Dosage: UNK, Q2MO [4ML+ 500 ML SALINE WATER/ TIME (LIQUID)]
     Route: 042

REACTIONS (7)
  - Blood potassium decreased [Recovered/Resolved]
  - Protein total decreased [Recovering/Resolving]
  - Blood potassium abnormal [Unknown]
  - Nasopharyngitis [Unknown]
  - Appetite disorder [Recovering/Resolving]
  - Cardiac discomfort [Unknown]
  - Transaminases increased [Recovered/Resolved]

NARRATIVE: CASE EVENT DATE: 20210115
